FAERS Safety Report 7400651-6 (Version None)
Quarter: 2011Q2

REPORT INFORMATION
  Report Type: 
  Country: None (occurrence: None)
  Receive Date: 20110407
  Receipt Date: 20110325
  Transmission Date: 20111010
  Serious: Yes (Other)
  Sender: FDA-Public Use
  Company Number: PHHY2011IN24563

PATIENT
  Age: 27 Year
  Sex: Male

DRUGS (3)
  1. HALOPERIDOL [Suspect]
     Indication: SCHIZOPHRENIA, PARANOID TYPE
     Dosage: 10 MG/DAY
  2. OLANZAPINE [Suspect]
     Dosage: 10 MG/DAY
  3. OLANZAPINE [Suspect]
     Dosage: 2.5 MG/DAY

REACTIONS (8)
  - DISTURBANCE IN ATTENTION [None]
  - ATAXIA [None]
  - CEREBELLAR SYNDROME [None]
  - TREMOR [None]
  - MUSCLE RIGIDITY [None]
  - RED BLOOD CELL SEDIMENTATION RATE INCREASED [None]
  - GAIT DISTURBANCE [None]
  - NORMAL PRESSURE HYDROCEPHALUS [None]
